FAERS Safety Report 15876848 (Version 2)
Quarter: 2019Q1

REPORT INFORMATION
  Report Type: Report from Study
  Country: JP (occurrence: JP)
  Receive Date: 20190127
  Receipt Date: 20190130
  Transmission Date: 20190417
  Serious: Yes (Death, Other)
  Sender: FDA-Public Use
  Company Number: JP-BRISTOL-MYERS SQUIBB COMPANY-BMS-2018-054136

PATIENT
  Age: 50 Year
  Sex: Female

DRUGS (7)
  1. METHOTREXATE. [Concomitant]
     Active Substance: METHOTREXATE
     Indication: PRODUCT USED FOR UNKNOWN INDICATION
     Dosage: 12 MG, QWK
     Route: 065
  2. ASPIRIN                            /00002701/ [Concomitant]
     Active Substance: ASPIRIN
     Indication: PRODUCT USED FOR UNKNOWN INDICATION
     Dosage: 100 MG, QD
     Route: 065
  3. BERAPROST SODIUM [Concomitant]
     Active Substance: BERAPROST SODIUM
     Indication: PRODUCT USED FOR UNKNOWN INDICATION
     Dosage: 80 ?G, QD
     Route: 065
  4. ABATACEPT [Suspect]
     Active Substance: ABATACEPT
     Indication: RHEUMATOID ARTHRITIS
     Dosage: 125 MG, QWK
     Route: 058
     Dates: start: 20180330, end: 20180622
  5. FOLIC ACID. [Concomitant]
     Active Substance: FOLIC ACID
     Indication: PRODUCT USED FOR UNKNOWN INDICATION
     Dosage: 10 MG, QWK
     Route: 065
  6. ETODOLAC. [Concomitant]
     Active Substance: ETODOLAC
     Indication: PRODUCT USED FOR UNKNOWN INDICATION
     Dosage: 400 MG, QD
     Route: 065
  7. ESOMEPRAZOLE MAGNESIUM. [Concomitant]
     Active Substance: ESOMEPRAZOLE MAGNESIUM
     Indication: PRODUCT USED FOR UNKNOWN INDICATION
     Dosage: 10 MG, QD
     Route: 065

REACTIONS (4)
  - Metastases to lung [Unknown]
  - Oropharyngeal pain [Unknown]
  - Adenocarcinoma of the cervix [Fatal]
  - Upper respiratory tract inflammation [Recovered/Resolved]

NARRATIVE: CASE EVENT DATE: 20180427
